FAERS Safety Report 22808788 (Version 9)
Quarter: 2024Q1

REPORT INFORMATION
  Report Type: Spontaneous
  Country: US (occurrence: US)
  Receive Date: 20230810
  Receipt Date: 20240129
  Transmission Date: 20240410
  Serious: No
  Sender: FDA-Public Use
  Company Number: US-PFIZER INC-202300267769

PATIENT
  Age: 11 Year
  Sex: Female

DRUGS (1)
  1. GENOTROPIN [Suspect]
     Active Substance: SOMATROPIN
     Dosage: 1.4 MG, DAILY

REACTIONS (8)
  - Wrong technique in device usage process [Unknown]
  - Lack of injection site rotation [Unknown]
  - Poor quality product administered [Unknown]
  - Product storage error [Unknown]
  - Injection site discomfort [Unknown]
  - Device leakage [Unknown]
  - Device physical property issue [Unknown]
  - Product odour abnormal [Unknown]
